FAERS Safety Report 5657443-8 (Version None)
Quarter: 2008Q1

REPORT INFORMATION
  Report Type: 
  Country: None (occurrence: None)
  Receive Date: 20080310
  Receipt Date: 20080227
  Transmission Date: 20080703
  Serious: Yes (Hospitalization)
  Sender: FDA-Public Use
  Company Number: ES-PFIZER INC-2008018051

PATIENT
  Age: 88 Year
  Sex: Female

DRUGS (9)
  1. NEURONTIN [Suspect]
     Indication: PAIN
     Route: 048
  2. TRANSTEC TTS [Interacting]
     Indication: PAIN
     Dosage: FREQ:EACH 72 HOURS
     Route: 062
     Dates: start: 20070611, end: 20070625
  3. NITRODERM [Concomitant]
     Indication: ISCHAEMIC CARDIOMYOPATHY
     Dosage: DAILY DOSE:50MG
     Route: 062
  4. OMEPRAZOLE [Concomitant]
     Indication: GASTRITIS PROPHYLAXIS
     Dosage: DAILY DOSE:20MG
     Route: 048
  5. SEGURIL [Concomitant]
     Route: 048
  6. CALCIUM [Concomitant]
  7. EFFERALGAN [Concomitant]
  8. DILTIAZEM [Concomitant]
  9. ASPIRIN [Concomitant]
     Route: 048

REACTIONS (3)
  - DRUG INTERACTION [None]
  - HYPOVENTILATION [None]
  - RESPIRATORY FAILURE [None]
